FAERS Safety Report 23892134 (Version 1)
Quarter: 2024Q2

REPORT INFORMATION
  Report Type: Spontaneous
  Country: US (occurrence: None)
  Receive Date: 20240524
  Receipt Date: 20240524
  Transmission Date: 20240716
  Serious: No
  Sender: FDA-Public Use
  Company Number: US-ROCHE-3461586

PATIENT
  Sex: Male

DRUGS (9)
  1. ACTEMRA [Suspect]
     Active Substance: TOCILIZUMAB
     Indication: Juvenile idiopathic arthritis
     Route: 065
  2. FOLINIC PLUS [Concomitant]
  3. GLUTATHIONE [Concomitant]
     Active Substance: GLUTATHIONE
  4. INTUNIV [Concomitant]
     Active Substance: GUANFACINE HYDROCHLORIDE
  5. LEFLUNOMIDE [Concomitant]
     Active Substance: LEFLUNOMIDE
  6. NALTREXONE HYDROCHLORIDE [Concomitant]
     Active Substance: NALTREXONE HYDROCHLORIDE
  7. PREDNISOLONE [Concomitant]
     Active Substance: PREDNISOLONE
  8. PREDNISONE [Concomitant]
     Active Substance: PREDNISONE
  9. VITAMIN D3 [Concomitant]
     Active Substance: CHOLECALCIFEROL

REACTIONS (1)
  - Iritis [Not Recovered/Not Resolved]
